FAERS Safety Report 5160449-9 (Version None)
Quarter: 2006Q4

REPORT INFORMATION
  Report Type: 
  Country: None (occurrence: None)
  Receive Date: 20061121
  Receipt Date: 20061103
  Transmission Date: 20070319
  Serious: Yes (Death, Hospitalization)
  Sender: FDA-Public Use
  Company Number: 231533

PATIENT
  Age: 76 Year
  Sex: Female

DRUGS (10)
  1. RANIBIZUMAB(RANIBIZUMAB) PWDR + SOLVENT,INJECTION SOLN [Suspect]
     Indication: MACULAR DEGENERATION
     Dosage: INTRAVITREAL
     Route: 050
     Dates: start: 20060317, end: 20060517
  2. SYNTHROID [Concomitant]
  3. NORVASC [Concomitant]
  4. ASPIRIN [Concomitant]
  5. ZOLOFT [Concomitant]
  6. LIPITOR [Concomitant]
  7. LISINOPRIL [Concomitant]
  8. COUMADIN [Concomitant]
  9. ALBUTEROL (ALBUTEROL/ALBUTEROL SULFATE) [Concomitant]
  10. SENOKOT [Concomitant]

REACTIONS (1)
  - CEREBROVASCULAR ACCIDENT [None]
